FAERS Safety Report 8821402 (Version 2)
Quarter: 2012Q4

REPORT INFORMATION
  Report Type: 
  Country: CA (occurrence: CA)
  Receive Date: 20121002
  Receipt Date: 20121108
  Transmission Date: 20130627
  Serious: Yes (Death, Hospitalization, Other)
  Sender: FDA-Public Use
  Company Number: CA-INCYTE CORPORATION-2012IN001917

PATIENT
  Age: 58 Year
  Sex: Female

DRUGS (1)
  1. JAKAVI [Suspect]
     Indication: MYELOFIBROSIS
     Dosage: 5 mg, bid
     Route: 048
     Dates: start: 20120817, end: 20120918

REACTIONS (3)
  - Death [Fatal]
  - Abdominal pain [Unknown]
  - Platelet count decreased [Unknown]
